FAERS Safety Report 10046919 (Version 1)
Quarter: 2014Q1

REPORT INFORMATION
  Report Type: Spontaneous
  Country: US (occurrence: US)
  Receive Date: 20140331
  Receipt Date: 20140331
  Transmission Date: 20141002
  Serious: Yes (Hospitalization)
  Sender: FDA-Public Use
  Company Number: US-BAYER-2014-045379

PATIENT
  Age: 30 Year
  Sex: Female
  Weight: 56.69 kg

DRUGS (3)
  1. YASMIN [Suspect]
  2. PREDNISONE [Concomitant]
     Indication: ASTHMA
     Dosage: 20 MG, UNK
     Route: 048
     Dates: start: 20050712, end: 20050720
  3. ALBUTEROL [Concomitant]
     Indication: ASTHMA
     Dosage: UNK
     Route: 045
     Dates: start: 20050720

REACTIONS (2)
  - Pulmonary embolism [None]
  - Peripheral artery thrombosis [None]
